FAERS Safety Report 9419098 (Version 1)
Quarter: 2013Q3

REPORT INFORMATION
  Report Type: Spontaneous
  Country: US (occurrence: US)
  Receive Date: 20130725
  Receipt Date: 20130725
  Transmission Date: 20140515
  Serious: Yes (Hospitalization)
  Sender: FDA-Public Use
  Company Number: US-ASTELLAS-2013US007713

PATIENT
  Age: 57 Year
  Sex: Female
  Weight: 61 kg

DRUGS (8)
  1. MYCAMINE [Suspect]
     Indication: PERITONEAL ABSCESS
     Dosage: 100 MG, UID/QD
     Route: 065
     Dates: start: 20130305, end: 20130517
  2. MYCAMINE [Suspect]
     Indication: SEPSIS
  3. ERAXIS [Suspect]
     Indication: PERITONEAL ABSCESS
     Dosage: 100 MG, UID/QD
     Route: 065
     Dates: end: 201303
  4. ERAXIS [Suspect]
     Indication: SEPSIS
  5. TYGACIL [Suspect]
     Indication: PERITONEAL ABSCESS
     Dosage: 100 MG, LOADING DOSE
     Route: 042
     Dates: start: 20130419
  6. TYGACIL [Suspect]
     Indication: SEPSIS
     Dosage: 50 MG, Q12 HOURS
     Route: 042
  7. TYGACIL [Suspect]
     Dosage: UNK
     Route: 042
     Dates: start: 20130605
  8. TOTAL PARENTERAL NUTRITION [Suspect]
     Indication: MALNUTRITION
     Dosage: UNK
     Route: 065

REACTIONS (3)
  - Adverse event [Unknown]
  - Fistula [Unknown]
  - Blood urea increased [Recovered/Resolved]
